FAERS Safety Report 20095771 (Version 2)
Quarter: 2021Q4

REPORT INFORMATION
  Report Type: Spontaneous
  Country: US (occurrence: US)
  Receive Date: 20211122
  Receipt Date: 20211215
  Transmission Date: 20220304
  Serious: No
  Sender: FDA-Public Use
  Company Number: US-AIMMUNE THERAPEUTICS, INC.-2021AIMT00697

PATIENT

DRUGS (4)
  1. PALFORZIA [Suspect]
     Active Substance: PEANUT
     Indication: Food allergy
     Dosage: 120 MG, ONCE, ONLY DOSE PRIOR ABDOMINAL PAIN
     Route: 048
     Dates: start: 20211021, end: 20211021
  2. PALFORZIA [Suspect]
     Active Substance: PEANUT
     Dosage: 80 MG, 1X/DAY
     Route: 048
     Dates: start: 20211022, end: 20211031
  3. PALFORZIA [Suspect]
     Active Substance: PEANUT
     Dosage: 120 MG, 1X/DAY
     Route: 048
     Dates: start: 20211201
  4. PALFORZIA [Suspect]
     Active Substance: PEANUT
     Dosage: 120 MG, ONCE, LAST DOSE PRIOR STOMACH ACHE AND BLOATING
     Route: 048
     Dates: start: 20211201, end: 20211201

REACTIONS (7)
  - Nasopharyngitis [Recovered/Resolved]
  - Oropharyngeal pain [Recovered/Resolved]
  - Rhinorrhoea [Recovered/Resolved]
  - Cough [Recovered/Resolved]
  - Abdominal distension [Recovered/Resolved]
  - Abdominal pain [Recovered/Resolved]
  - Abdominal pain upper [Recovered/Resolved]

NARRATIVE: CASE EVENT DATE: 20210101
